FAERS Safety Report 11859939 (Version 1)
Quarter: 2015Q4

REPORT INFORMATION
  Report Type: Report from Study
  Country: US (occurrence: US)
  Receive Date: 20151222
  Receipt Date: 20151222
  Transmission Date: 20160305
  Serious: Yes (Hospitalization)
  Sender: FDA-Public Use
  Company Number: US-THERATECHNOLOGIES, INC.-TH-2015-00036

PATIENT
  Age: 56 Year
  Sex: Male
  Weight: 218.8 kg

DRUGS (9)
  1. EPZICOM [Concomitant]
     Active Substance: ABACAVIR SULFATE\LAMIVUDINE
     Indication: HIV INFECTION
     Dosage: TABLET
     Route: 048
     Dates: start: 20090716
  2. TAMULOSIN [Concomitant]
     Active Substance: TAMSULOSIN
     Indication: NEPHROLITHIASIS
     Dosage: .4 MILLIGRAM
     Route: 048
     Dates: start: 20141205
  3. ZOLPIDEM [Concomitant]
     Active Substance: ZOLPIDEM\ZOLPIDEM TARTRATE
     Indication: INSOMNIA
     Dosage: 10 MILLIGRAM
     Route: 048
     Dates: start: 20120124
  4. PRAVASTATIN [Concomitant]
     Active Substance: PRAVASTATIN\PRAVASTATIN SODIUM
     Indication: HYPERLIPIDAEMIA
     Dosage: 80 MILLIGRAM
     Route: 048
     Dates: start: 20130813
  5. RALTEGRAVIR. [Concomitant]
     Active Substance: RALTEGRAVIR
     Indication: HIV INFECTION
     Dosage: 800 MILLIGRAM
     Route: 048
     Dates: start: 20090716
  6. VENLAFAXINE [Concomitant]
     Active Substance: VENLAFAXINE HYDROCHLORIDE
     Indication: DEPRESSION
     Dosage: 225 MILLIGRAM
     Route: 048
     Dates: start: 20121218
  7. NO STUDY MEDICATION [Suspect]
     Active Substance: UNSPECIFIED INGREDIENT
     Indication: LIPOHYPERTROPHY
  8. ARIPRAZOLE [Concomitant]
     Active Substance: ARIPIPRAZOLE
     Indication: DEPRESSION
     Dosage: 5 MILLIGRAM
     Route: 048
     Dates: start: 20140927
  9. BUPROPION. [Concomitant]
     Active Substance: BUPROPION
     Indication: DEPRESSION
     Dosage: 30 MILLIGRAM
     Route: 048
     Dates: start: 20130506

REACTIONS (1)
  - Parathyroid tumour benign [Recovered/Resolved]

NARRATIVE: CASE EVENT DATE: 20150401
